FAERS Safety Report 25420587 (Version 3)
Quarter: 2025Q2

REPORT INFORMATION
  Report Type: Spontaneous
  Country: US (occurrence: US)
  Receive Date: 20250611
  Receipt Date: 20250625
  Transmission Date: 20250717
  Serious: No
  Sender: ROCHE
  Company Number: US-ROCHE-10000304494

PATIENT
  Age: 74 Year
  Sex: Female

DRUGS (2)
  1. ACTEMRA [Suspect]
     Active Substance: TOCILIZUMAB
     Indication: Giant cell arteritis
     Dosage: (STRENGTH REPORTED AS: 162MG/0.9M)
     Route: 058
     Dates: start: 202502
  2. ACTEMRA [Suspect]
     Active Substance: TOCILIZUMAB
     Dosage: (STRENGTH REPORTED AS: 162MG/0.9M)
     Route: 058
     Dates: start: 20250306

REACTIONS (7)
  - Product complaint [Unknown]
  - Accidental exposure to product [Unknown]
  - Product storage error [Unknown]
  - Device malfunction [Unknown]
  - Emotional distress [Unknown]
  - Device issue [Unknown]
  - Frustration tolerance decreased [Unknown]

NARRATIVE: CASE EVENT DATE: 20250529
